FAERS Safety Report 4870550-2 (Version None)
Quarter: 2006Q1

REPORT INFORMATION
  Report Type: 
  Country: None (occurrence: None)
  Receive Date: 20060103
  Receipt Date: 20051230
  Transmission Date: 20060701
  Serious: Yes (Life-Threatening)
  Sender: FDA-Public Use
  Company Number: PHFR2005GB04176

PATIENT
  Age: 71 Year
  Sex: Male

DRUGS (8)
  1. WARFARIN [Suspect]
     Indication: ATRIAL FIBRILLATION
     Route: 048
     Dates: start: 20051101, end: 20051201
  2. ACETYLSALICYLIC ACID (NGX) [Suspect]
     Route: 048
  3. AMIODARONE [Concomitant]
     Route: 065
  4. DICLOFENAC [Suspect]
     Indication: ANALGESIC EFFECT
     Route: 048
  5. OMEPRAZOLE [Concomitant]
     Route: 065
  6. QUININE [Concomitant]
     Route: 065
  7. ROSUVASTATIN [Concomitant]
     Route: 065
  8. FRUSEMIDE [Concomitant]
     Route: 065

REACTIONS (2)
  - GASTROINTESTINAL HAEMORRHAGE [None]
  - INTERNATIONAL NORMALISED RATIO INCREASED [None]
